FAERS Safety Report 7619276-2 (Version None)
Quarter: 2011Q3

REPORT INFORMATION
  Report Type: 
  Country: None (occurrence: None)
  Receive Date: 20110718
  Receipt Date: 20110707
  Transmission Date: 20111222
  Serious: Yes (Other)
  Sender: FDA-Public Use
  Company Number: AU-BAXTER-2011BH022587

PATIENT

DRUGS (4)
  1. PREDNISONE [Suspect]
     Indication: LYMPHOMA
     Route: 065
  2. CYCLOPHOSPHAMIDE [Suspect]
     Indication: LYMPHOMA
     Route: 065
  3. VINCRISTINE SULFATE [Suspect]
     Indication: LYMPHOMA
     Route: 065
  4. DOXORUBICIN HCL [Suspect]
     Indication: LYMPHOMA
     Route: 065

REACTIONS (1)
  - MYOCARDIAL INFARCTION [None]
